FAERS Safety Report 7684751-1 (Version None)
Quarter: 2011Q3

REPORT INFORMATION
  Report Type: 
  Country: None (occurrence: None)
  Receive Date: 20110816
  Receipt Date: 20110803
  Transmission Date: 20111222
  Serious: Yes (Other)
  Sender: FDA-Public Use
  Company Number: US-ELI_LILLY_AND_COMPANY-US201102003038

PATIENT
  Sex: Female
  Weight: 56 kg

DRUGS (22)
  1. MEDROXYPROGESTERONE [Concomitant]
     Dosage: 2.5 MG, QD
  2. DIAZEPAM [Concomitant]
     Dosage: 10 MG, PRN
  3. MIRALAX [Concomitant]
  4. FORTEO [Suspect]
     Dosage: 20 UG, QD
     Route: 058
     Dates: start: 20110301
  5. BONIVA [Concomitant]
  6. ALBUTEROL SULFATE AUTOHALER [Concomitant]
  7. PANTOPRAZOLE [Concomitant]
     Dosage: 40 MG, QD
  8. ESTRADIOL [Concomitant]
     Dosage: 1 MG, QD
  9. RANITIDINE [Concomitant]
     Dosage: 300 MG, QD
  10. CALCIUM CARBONATE [Concomitant]
  11. SINGULAIR [Concomitant]
     Dosage: 10 MG, QD
  12. ADVAIR DISKUS 100/50 [Concomitant]
     Dosage: UNK, BID
  13. FORTEO [Suspect]
     Indication: OSTEOPOROSIS
     Dosage: 20 UG, QD
     Route: 058
     Dates: start: 20110203, end: 20110214
  14. OXYCONTIN [Concomitant]
     Dosage: 30 MG, BID
  15. OXYCONTIN [Concomitant]
     Dosage: 80 MG, BID
  16. VITAMIN D [Concomitant]
  17. CHERATUSSIN [Concomitant]
     Dosage: UNK, PRN
  18. XANAX [Concomitant]
  19. BACLOFEN [Concomitant]
     Indication: MUSCLE SPASMS
     Dosage: 10 MG, OTHER
  20. SPIRIVA [Concomitant]
  21. CELEXA [Concomitant]
     Dosage: 30 MG, QD
  22. ASPIRIN [Concomitant]
     Dosage: 81 MG, UNK

REACTIONS (11)
  - DYSSTASIA [None]
  - ARTHRALGIA [None]
  - WRIST FRACTURE [None]
  - ILL-DEFINED DISORDER [None]
  - DIZZINESS [None]
  - FALL [None]
  - MYALGIA [None]
  - DEVICE MISUSE [None]
  - NAUSEA [None]
  - VOMITING [None]
  - PAIN [None]
